FAERS Safety Report 9952615 (Version 1)
Quarter: 2014Q1

REPORT INFORMATION
  Report Type: Spontaneous
  Country: MX (occurrence: MX)
  Receive Date: 20140304
  Receipt Date: 20140304
  Transmission Date: 20141002
  Serious: Yes (Other)
  Sender: FDA-Public Use
  Company Number: PHHY2014MX026039

PATIENT
  Age: 83 Year
  Sex: Female

DRUGS (3)
  1. ACLASTA [Suspect]
     Indication: OSTEOPOROSIS
     Dosage: 5 MG/ 100ML, ANNUALLY
     Route: 042
  2. ACLASTA [Suspect]
     Dosage: 5 MG/ 100ML, ANNUALLY
     Route: 042
     Dates: start: 201210
  3. ACLASTA [Suspect]
     Dosage: 5 MG/ 100ML, ANNUALLY
     Route: 042
     Dates: start: 201210

REACTIONS (4)
  - Hip fracture [Recovered/Resolved]
  - Abasia [Recovered/Resolved]
  - Pathological fracture [Recovered/Resolved]
  - Inappropriate schedule of drug administration [Not Recovered/Not Resolved]
